FAERS Safety Report 8947434 (Version 1)
Quarter: 2012Q4

REPORT INFORMATION
  Report Type: 
  Country: RU (occurrence: RU)
  Receive Date: 20121204
  Receipt Date: 20121204
  Transmission Date: 20130627
  Serious: Yes (Death)
  Sender: FDA-Public Use
  Company Number: RU-ACTELION-A-CH2012-75296

PATIENT
  Age: 2 Year
  Sex: Female

DRUGS (6)
  1. TRACLEER [Suspect]
     Indication: PULMONARY ARTERIAL HYPERTENSION
     Dosage: 31.25 mg, UNK
     Route: 048
     Dates: start: 20120906, end: 20120908
  2. AMLODIPIN [Concomitant]
     Dosage: UNK
     Dates: start: 201207, end: 201209
  3. VEROSPIRON [Concomitant]
     Dosage: UNK
     Dates: start: 201207, end: 201209
  4. SILDENAFIL [Concomitant]
     Dosage: UNK
     Dates: start: 201208, end: 201209
  5. DIGOXIN [Concomitant]
     Dosage: UNK
     Dates: start: 201208, end: 201209
  6. VASAPROSTAN [Concomitant]
     Dosage: UNK
     Dates: start: 201208, end: 201209

REACTIONS (2)
  - Pulmonary arterial hypertension [Fatal]
  - Disease progression [Fatal]
